FAERS Safety Report 10044436 (Version 2)
Quarter: 2014Q2

REPORT INFORMATION
  Report Type: Spontaneous
  Country: JP (occurrence: JP)
  Receive Date: 20140328
  Receipt Date: 20140424
  Transmission Date: 20141212
  Serious: Yes (Death)
  Sender: FDA-Public Use
  Company Number: JP-JNJFOC-20140311237

PATIENT
  Age: 51 Year
  Sex: Male
  Weight: 63 kg

DRUGS (10)
  1. HALOPERIDOL [Suspect]
     Indication: SCHIZOAFFECTIVE DISORDER
     Route: 048
  2. RISPERIDONE [Suspect]
     Indication: SCHIZOAFFECTIVE DISORDER
     Route: 048
     Dates: start: 20130131
  3. FLUPHENAZINE DECANOATE [Suspect]
     Indication: SCHIZOAFFECTIVE DISORDER
     Route: 030
  4. FLUPHENAZINE DECANOATE [Suspect]
     Indication: SCHIZOAFFECTIVE DISORDER
     Route: 030
     Dates: start: 20130212
  5. ZOTEPINE [Suspect]
     Indication: SCHIZOAFFECTIVE DISORDER
     Route: 048
     Dates: start: 20130131
  6. ZOTEPINE [Suspect]
     Indication: SCHIZOAFFECTIVE DISORDER
     Route: 048
  7. VALPROIC ACID [Suspect]
     Indication: SCHIZOAFFECTIVE DISORDER
     Route: 048
     Dates: start: 20130131
  8. BIPERIDEN [Suspect]
     Indication: SCHIZOAFFECTIVE DISORDER
     Route: 048
  9. LITHIUM CARBONATE [Suspect]
     Indication: SCHIZOAFFECTIVE DISORDER
     Route: 048
  10. LITHIUM CARBONATE [Suspect]
     Indication: SCHIZOAFFECTIVE DISORDER
     Route: 048
     Dates: start: 20130131

REACTIONS (1)
  - Neuroleptic malignant syndrome [Fatal]
